FAERS Safety Report 6739047-9 (Version None)
Quarter: 2010Q2

REPORT INFORMATION
  Report Type: 
  Country: None (occurrence: None)
  Receive Date: 20100524
  Receipt Date: 20100512
  Transmission Date: 20101027
  Serious: Yes (Hospitalization)
  Sender: FDA-Public Use
  Company Number: US-ELI_LILLY_AND_COMPANY-US201004001877

PATIENT
  Sex: Male
  Weight: 32.2 kg

DRUGS (9)
  1. STRATTERA [Suspect]
     Indication: ATTENTION DEFICIT/HYPERACTIVITY DISORDER
     Dosage: 1 D/F, UNK
     Dates: start: 20081120
  2. STRATTERA [Suspect]
     Dosage: 25 MG, DAILY (1/D)
     Dates: end: 20100405
  3. ABILIFY [Concomitant]
  4. MIRALAX [Concomitant]
  5. FISH OIL [Concomitant]
  6. TYLENOL                                 /SCH/ [Concomitant]
  7. SINGULAIR [Concomitant]
     Dosage: 5 MG, UNK
  8. DIGESTIVES ENZYMES [Concomitant]
     Dosage: 1 D/F, 2/D
  9. MULTI-VITAMIN [Concomitant]
     Dosage: 1 D/F, DAILY (1/D)

REACTIONS (5)
  - ABDOMINAL PAIN [None]
  - LYMPHOCYTE COUNT INCREASED [None]
  - MONOCYTE COUNT INCREASED [None]
  - PRIAPISM [None]
  - RED BLOOD CELL COUNT DECREASED [None]
